FAERS Safety Report 12592335 (Version 1)
Quarter: 2016Q3

REPORT INFORMATION
  Report Type: Spontaneous
  Country: US (occurrence: US)
  Receive Date: 20160726
  Receipt Date: 20160726
  Transmission Date: 20161109
  Serious: Yes (Other)
  Sender: FDA-Public Use
  Company Number: US-ACTAVIS-2016-16303

PATIENT
  Age: 66 Year
  Sex: Female

DRUGS (3)
  1. LEVETIRACETAM. [Concomitant]
     Active Substance: LEVETIRACETAM
     Indication: EPILEPSY
     Dosage: UNK
     Route: 065
  2. PREGABALIN. [Concomitant]
     Active Substance: PREGABALIN
     Indication: EPILEPSY
     Dosage: UNK
     Route: 065
  3. LAMOTRIGINE (WATSON LABORATORIES) [Suspect]
     Active Substance: LAMOTRIGINE
     Indication: EPILEPSY
     Dosage: 600 MG, DAILY
     Route: 065

REACTIONS (7)
  - Delirium [Unknown]
  - Pyrexia [Unknown]
  - Agitation [Unknown]
  - Vomiting [Unknown]
  - Confusional state [Unknown]
  - Diarrhoea [Unknown]
  - Headache [Unknown]
